FAERS Safety Report 25967605 (Version 1)
Quarter: 2025Q4

REPORT INFORMATION
  Report Type: Spontaneous
  Country: US (occurrence: US)
  Receive Date: 20251028
  Receipt Date: 20251028
  Transmission Date: 20260118
  Serious: No
  Sender: ROCHE
  Company Number: US-ROCHE-10000413718

PATIENT
  Sex: Male

DRUGS (1)
  1. COTELLIC [Suspect]
     Active Substance: COBIMETINIB FUMARATE
     Indication: Warm autoimmune haemolytic anaemia
     Route: 048
     Dates: start: 202405

REACTIONS (2)
  - Sluggishness [Unknown]
  - Off label use [Unknown]
